FAERS Safety Report 9869638 (Version 3)
Quarter: 2014Q1

REPORT INFORMATION
  Report Type: Report from Study
  Country: HU (occurrence: HU)
  Receive Date: 20140205
  Receipt Date: 20140219
  Transmission Date: 20141002
  Serious: Yes (Hospitalization)
  Sender: FDA-Public Use
  Company Number: HU-ELI_LILLY_AND_COMPANY-HU201311001640

PATIENT
  Age: 77 Year
  Sex: Male
  Weight: 84 kg

DRUGS (14)
  1. INSULIN GLARGINE [Suspect]
     Indication: TYPE 2 DIABETES MELLITUS
     Dosage: 69 IU, QD
     Route: 058
     Dates: start: 20121219
  2. LISPRO [Suspect]
     Indication: TYPE 2 DIABETES MELLITUS
     Dosage: 34-33-34 IU/DAY
     Route: 058
     Dates: start: 20121219
  3. LISPRO [Suspect]
     Dosage: 33-33-40 IU/DAY
     Route: 058
     Dates: start: 20131002
  4. FURON [Concomitant]
     Indication: HYPERTENSION
     Dosage: UNK
     Route: 065
     Dates: start: 2007
  5. TALLITON [Concomitant]
     Indication: HYPERTENSION
     Dosage: UNK
     Route: 065
     Dates: start: 2007
  6. NITROMINT [Concomitant]
     Indication: MYOCARDIAL ISCHAEMIA
     Dosage: UNK
     Route: 065
     Dates: start: 1991
  7. CARDURA XL [Concomitant]
     Indication: HYPERTENSION
     Dosage: UNK
     Route: 065
     Dates: start: 2007
  8. REFLUXON [Concomitant]
     Dosage: UNK
     Route: 065
     Dates: start: 20130730
  9. DIGIMERCK [Concomitant]
     Indication: MYOCARDIAL ISCHAEMIA
     Dosage: UNK
     Route: 065
     Dates: start: 1991
  10. SYNCUMAR [Concomitant]
     Indication: ATRIAL FIBRILLATION
     Dosage: UNK
     Route: 065
     Dates: start: 2009
  11. CIFRAN                             /00697201/ [Concomitant]
     Indication: URINARY TRACT INFECTION
     Dosage: 1000 MG, UNK
     Route: 065
     Dates: start: 20131108, end: 20131113
  12. PREDUCTAL [Concomitant]
     Indication: MYOCARDIAL ISCHAEMIA
     Dosage: UNK
     Route: 065
     Dates: start: 20131103
  13. NORVASC [Concomitant]
     Indication: HYPERTENSION
     Dosage: UNK
     Route: 065
     Dates: start: 20131103
  14. SPIRON [Concomitant]
     Indication: MYOCARDIAL ISCHAEMIA
     Dosage: UNK
     Dates: start: 20131103, end: 20131113

REACTIONS (1)
  - Cardio-respiratory arrest [Recovered/Resolved with Sequelae]
